FAERS Safety Report 10309184 (Version 1)
Quarter: 2014Q3

REPORT INFORMATION
  Report Type: Spontaneous
  Country: IN (occurrence: IN)
  Receive Date: 20140716
  Receipt Date: 20140716
  Transmission Date: 20150326
  Serious: No
  Sender: FDA-Public Use
  Company Number: IN-009507513-1407IND003333

PATIENT
  Age: 64 Year
  Sex: Female
  Weight: 75 kg

DRUGS (8)
  1. PPG [Concomitant]
     Dosage: 1 TABLET OD
     Route: 048
  2. CHOLECALCIFEROL [Concomitant]
     Active Substance: CHOLECALCIFEROL
     Dosage: FORMULATION: SACHET; DOSE 60000, WEEKLY
     Route: 048
  3. UNISTEN [Concomitant]
     Dosage: 0-1 HS
  4. LANTUS [Concomitant]
     Active Substance: INSULIN GLARGINE
     Dosage: 26 IU, AT BED TIME
     Route: 030
  5. UNISTEN [Concomitant]
     Dosage: 1 TABLET,OD
     Route: 048
  6. JANUMET [Suspect]
     Active Substance: METFORMIN HYDROCHLORIDE\SITAGLIPTIN PHOSPHATE
     Indication: TYPE 2 DIABETES MELLITUS
     Dosage: 1 TAB, BID
     Route: 048
     Dates: start: 20140130, end: 20140406
  7. ELTROXIN [Concomitant]
     Active Substance: LEVOTHYROXINE
     Dosage: 125MG, 1 TABLET,OD
     Route: 048
  8. TELMA [Concomitant]
     Active Substance: TELMISARTAN
     Dosage: 1 TABLET,OD
     Route: 048

REACTIONS (2)
  - Pain in extremity [Recovered/Resolved]
  - Abasia [Unknown]

NARRATIVE: CASE EVENT DATE: 20140215
